FAERS Safety Report 17309363 (Version 1)
Quarter: 2020Q1

REPORT INFORMATION
  Report Type: Spontaneous
  Country: US (occurrence: US)
  Receive Date: 20200123
  Receipt Date: 20200123
  Transmission Date: 20200409
  Serious: No
  Sender: FDA-Public Use
  Company Number: US-ROCHE-2342142

PATIENT
  Sex: Male

DRUGS (5)
  1. HEMLIBRA [Suspect]
     Active Substance: EMICIZUMAB-KXWH
     Indication: FACTOR VIII DEFICIENCY
     Dosage: 105 MG/0.7ML VIAL INJECT EMICIZUMAB 0.7 ML (105 MG) SUBCUTANEOUSLY ONCE A WEEK FOR A TOTAL DOSE OF
     Route: 058
     Dates: start: 201811
  2. ACETAMINOPHEN. [Concomitant]
     Active Substance: ACETAMINOPHEN
  3. TYLENOL EXTRA STRENGTH [Concomitant]
     Active Substance: ACETAMINOPHEN
  4. HYDROCODONE [Concomitant]
     Active Substance: HYDROCODONE
  5. HEMLIBRA [Suspect]
     Active Substance: EMICIZUMAB-KXWH
     Dosage: 30 MG/ML VIAL (INJECT EMICIZUMAB 0.75 ML (22.5 MG) SUBCUTANEOUSLY ONCE A WEEK FOR A TOTAL DOSE OF 1.
     Route: 058
     Dates: start: 201811

REACTIONS (1)
  - Haemorrhage [Unknown]
